FAERS Safety Report 7788615-4 (Version None)
Quarter: 2011Q3

REPORT INFORMATION
  Report Type: 
  Country: None (occurrence: None)
  Receive Date: 20110930
  Receipt Date: 20110922
  Transmission Date: 20111222
  Serious: Yes (Other)
  Sender: FDA-Public Use
  Company Number: DE-UCBSA-036753

PATIENT
  Sex: Female
  Weight: 45 kg

DRUGS (4)
  1. MIRTAZAPINE [Concomitant]
     Indication: DEPRESSION
     Route: 048
     Dates: start: 20060101
  2. LEVETIRACETAM [Suspect]
     Indication: EPILEPSY
     Route: 048
     Dates: start: 20110701
  3. KEPPRA [Suspect]
     Dates: start: 20040101, end: 20110101
  4. ZONEGRAN [Concomitant]
     Indication: EPILEPSY
     Route: 048
     Dates: start: 20060101

REACTIONS (6)
  - RASH GENERALISED [None]
  - URTICARIA [None]
  - PRURITUS [None]
  - INFLAMMATION [None]
  - BLISTER [None]
  - CONVULSION [None]
